FAERS Safety Report 20774279 (Version 1)
Quarter: 2022Q2

REPORT INFORMATION
  Report Type: Spontaneous
  Country: US (occurrence: US)
  Receive Date: 20220502
  Receipt Date: 20220502
  Transmission Date: 20220721
  Serious: No
  Sender: FDA-Public Use
  Company Number: US-PFIZER INC-202100929219

PATIENT
  Age: 23 Year
  Sex: Female
  Weight: 66.68 kg

DRUGS (1)
  1. PFIZERPEN [Suspect]
     Active Substance: PENICILLIN G POTASSIUM
     Indication: Beta haemolytic streptococcal infection
     Dosage: UNK
     Dates: start: 20210720

REACTIONS (3)
  - Burning sensation [Not Recovered/Not Resolved]
  - Pain [Not Recovered/Not Resolved]
  - Exposure during pregnancy [Unknown]

NARRATIVE: CASE EVENT DATE: 20210720
